FAERS Safety Report 21719441 (Version 1)
Quarter: 2022Q4

REPORT INFORMATION
  Report Type: Spontaneous
  Country: NL (occurrence: NL)
  Receive Date: 20221213
  Receipt Date: 20221213
  Transmission Date: 20230112
  Serious: Yes (Other)
  Sender: FDA-Public Use
  Company Number: NL-LRB-00851633

PATIENT
  Sex: Female
  Weight: 65 kg

DRUGS (2)
  1. ISOTRETINOIN [Suspect]
     Active Substance: ISOTRETINOIN
     Indication: Acne
     Dosage: CAPSULE, 20 MG (MILLIGRAM),
     Route: 065
     Dates: start: 20220315
  2. ETHINYLESTRADIOL/LEVONORGESTREL TABLET 30/150UG [Concomitant]
     Indication: Product used for unknown indication
     Dosage: TABLET, 30/150 ?G (MICROGRAM)
     Route: 065

REACTIONS (4)
  - Urinary tract infection [Recovered/Resolved]
  - Arthralgia [Not Recovered/Not Resolved]
  - Myalgia [Not Recovered/Not Resolved]
  - Hot flush [Not Recovered/Not Resolved]
